FAERS Safety Report 14932495 (Version 3)
Quarter: 2023Q1

REPORT INFORMATION
  Report Type: Report from Study
  Country: US (occurrence: US)
  Receive Date: 20180524
  Receipt Date: 20230331
  Transmission Date: 20230417
  Serious: Yes (Death, Other)
  Sender: FDA-Public Use
  Company Number: US-ACADIA PHARMACEUTICALS INC.-ACA-2018-008409

PATIENT
  Age: 82 Year
  Sex: Male
  Weight: 53 kg

DRUGS (7)
  1. NUPLAZID [Suspect]
     Active Substance: PIMAVANSERIN TARTRATE
     Indication: Parkinson^s disease psychosis
     Dosage: 34 MILLIGRAM, QD
     Route: 048
     Dates: start: 20220209, end: 20230211
  2. NUPLAZID [Suspect]
     Active Substance: PIMAVANSERIN TARTRATE
     Dosage: 34 MILLIGRAM, QD
     Route: 048
     Dates: end: 20230223
  3. NUPLAZID [Suspect]
     Active Substance: PIMAVANSERIN TARTRATE
     Indication: Hallucination
     Dosage: 34 MG, QD
     Route: 048
     Dates: start: 201803, end: 201803
  4. NUPLAZID [Suspect]
     Active Substance: PIMAVANSERIN TARTRATE
     Indication: Delusion
  5. NUPLAZID [Suspect]
     Active Substance: PIMAVANSERIN TARTRATE
     Indication: Parkinson^s disease psychosis
  6. SINEMET [Suspect]
     Active Substance: CARBIDOPA\LEVODOPA
     Dosage: 4 TIMES A DAY
  7. DONEPEZIL [Concomitant]
     Active Substance: DONEPEZIL

REACTIONS (7)
  - Death [Fatal]
  - Product dose omission issue [Not Recovered/Not Resolved]
  - Disorientation [Unknown]
  - Nasopharyngitis [Unknown]
  - Malaise [Unknown]
  - Abnormal behaviour [Unknown]
  - Hallucination [Unknown]

NARRATIVE: CASE EVENT DATE: 20230211
